FAERS Safety Report 23287449 (Version 1)
Quarter: 2023Q4

REPORT INFORMATION
  Report Type: Spontaneous
  Country: US (occurrence: US)
  Receive Date: 20231212
  Receipt Date: 20231212
  Transmission Date: 20240110
  Serious: No
  Sender: FDA-Public Use
  Company Number: US-BoehringerIngelheim-2023-BI-277701

PATIENT
  Sex: Female

DRUGS (1)
  1. CYLTEZO [Suspect]
     Active Substance: ADALIMUMAB-ADBM
     Indication: Hidradenitis
     Dosage: FORM STRENGTH: 40 MILLIGRAM
     Dates: start: 20231201

REACTIONS (3)
  - Fungal infection [Unknown]
  - Hidradenitis [Unknown]
  - Insomnia [Unknown]

NARRATIVE: CASE EVENT DATE: 20231201
